FAERS Safety Report 21145620 (Version 2)
Quarter: 2022Q3

REPORT INFORMATION
  Report Type: Spontaneous
  Country: US (occurrence: US)
  Receive Date: 20220729
  Receipt Date: 20220817
  Transmission Date: 20221027
  Serious: Yes (Other)
  Sender: FDA-Public Use
  Company Number: US-BRISTOL-MYERS SQUIBB COMPANY-2022-078022

PATIENT
  Age: 68 Year
  Sex: Female

DRUGS (3)
  1. POMALYST [Suspect]
     Active Substance: POMALIDOMIDE
     Indication: Product used for unknown indication
     Dosage: 1 WEEK OFF
     Route: 048
  2. POMALYST [Suspect]
     Active Substance: POMALIDOMIDE
     Dosage: TAKE 1 CAPSULE BY  MOUTH EVERY DAY ON DAYS 1-21 THEN 7 DAYS OFF FOR A 28 DAY CYCLE
     Route: 048
  3. XARELTO [Concomitant]
     Active Substance: RIVAROXABAN
     Indication: Product used for unknown indication
     Route: 065

REACTIONS (2)
  - Product dose omission issue [Unknown]
  - Blood disorder [Recovered/Resolved]
